FAERS Safety Report 11823381 (Version 3)
Quarter: 2016Q1

REPORT INFORMATION
  Report Type: Report from Study
  Country: US (occurrence: US)
  Receive Date: 20151210
  Receipt Date: 20160129
  Transmission Date: 20160525
  Serious: Yes (Hospitalization)
  Sender: FDA-Public Use
  Company Number: US-ASTRAZENECA-2015SF00797

PATIENT
  Age: 26624 Day
  Sex: Female
  Weight: 75 kg

DRUGS (8)
  1. PROZAC [Concomitant]
     Active Substance: FLUOXETINE HYDROCHLORIDE
  2. ADVAIR HFA [Concomitant]
     Active Substance: FLUTICASONE PROPIONATE\SALMETEROL XINAFOATE
  3. LYRICA [Concomitant]
     Active Substance: PREGABALIN
  4. LOVENOX [Concomitant]
     Active Substance: ENOXAPARIN SODIUM
     Indication: THROMBOSIS PROPHYLAXIS
  5. ALBUTEROL. [Concomitant]
     Active Substance: ALBUTEROL
  6. LYNPARZA [Suspect]
     Active Substance: OLAPARIB
     Indication: OVARIAN CANCER
     Route: 048
     Dates: end: 20151020
  7. LYNPARZA [Suspect]
     Active Substance: OLAPARIB
     Indication: OVARIAN CANCER
     Route: 048
  8. OMEPRAZOLE. [Concomitant]
     Active Substance: OMEPRAZOLE

REACTIONS (5)
  - Fall [Recovered/Resolved]
  - Anaemia [Not Recovered/Not Resolved]
  - Fatigue [Recovered/Resolved]
  - Pancytopenia [Unknown]
  - Gait disturbance [Not Recovered/Not Resolved]

NARRATIVE: CASE EVENT DATE: 20151018
